FAERS Safety Report 12815447 (Version 9)
Quarter: 2017Q2

REPORT INFORMATION
  Report Type: Spontaneous
  Country: US (occurrence: US)
  Receive Date: 20161005
  Receipt Date: 20170607
  Transmission Date: 20170830
  Serious: No
  Sender: FDA-Public Use
  Company Number: US-ELI_LILLY_AND_COMPANY-US201609009756

PATIENT
  Age: 70 Year
  Sex: Male

DRUGS (16)
  1. HUMULIN R [Suspect]
     Active Substance: INSULIN HUMAN
     Dosage: UNK, SLIDING SCALE
     Route: 065
  2. HUMULIN R [Suspect]
     Active Substance: INSULIN HUMAN
     Dosage: UNK, SLIDING SCALE
     Route: 058
  3. HUMULIN N [Suspect]
     Active Substance: INSULIN HUMAN
     Dosage: UNK, UNKNOWN
     Route: 065
  4. HUMULIN N [Suspect]
     Active Substance: INSULIN HUMAN
     Dosage: 25 U, BID
     Route: 065
  5. BABY ASPIRIN [Concomitant]
     Active Substance: ASPIRIN
     Indication: PRODUCT USED FOR UNKNOWN INDICATION
     Dosage: UNK, UNKNOWN
     Route: 065
  6. HUMULIN R [Suspect]
     Active Substance: INSULIN HUMAN
     Dosage: UNK, SLIDING SCALE
     Route: 065
  7. HUMULIN N [Suspect]
     Active Substance: INSULIN HUMAN
     Dosage: 25 U, BID
     Route: 065
  8. HUMULIN N [Suspect]
     Active Substance: INSULIN HUMAN
     Dosage: UNK, UNKNOWN
     Route: 065
  9. HUMULIN N [Suspect]
     Active Substance: INSULIN HUMAN
     Dosage: 25 U, BID
     Route: 065
  10. HUMULIN R [Suspect]
     Active Substance: INSULIN HUMAN
     Indication: TYPE 2 DIABETES MELLITUS
     Dosage: UNK, UNKNOWN
     Route: 065
     Dates: start: 1986
  11. HUMULIN R [Suspect]
     Active Substance: INSULIN HUMAN
     Dosage: UNK, SLIDING SCALE
     Route: 058
  12. LITHIUM. [Concomitant]
     Active Substance: LITHIUM
     Indication: DEPRESSION
     Dosage: UNK, UNKNOWN
     Route: 065
  13. HUMULIN R [Suspect]
     Active Substance: INSULIN HUMAN
     Dosage: UNK, SLIDING SCALE
     Route: 065
  14. HUMULIN R [Suspect]
     Active Substance: INSULIN HUMAN
     Dosage: UNK, SLIDING SCALE
     Route: 058
  15. HUMULIN N [Suspect]
     Active Substance: INSULIN HUMAN
     Indication: TYPE 2 DIABETES MELLITUS
     Dosage: UNK, UNKNOWN
     Route: 065
     Dates: start: 1986
  16. HUMULIN N [Suspect]
     Active Substance: INSULIN HUMAN
     Dosage: 25 U, BID
     Route: 065

REACTIONS (14)
  - Macular fibrosis [Unknown]
  - Infection [Unknown]
  - Blood glucose increased [Unknown]
  - Drug dispensing error [Unknown]
  - Drug ineffective [Not Recovered/Not Resolved]
  - Blood glucose increased [Recovered/Resolved]
  - Cataract [Unknown]
  - Intercepted drug dispensing error [Unknown]
  - Drug ineffective [Not Recovered/Not Resolved]
  - Eye disorder [Unknown]
  - Weight decreased [Unknown]
  - Incorrect product storage [Unknown]
  - Blood glucose abnormal [Not Recovered/Not Resolved]
  - Drug ineffective [Recovered/Resolved]

NARRATIVE: CASE EVENT DATE: 20161008
